FAERS Safety Report 4648480-0 (Version None)
Quarter: 2005Q2

REPORT INFORMATION
  Report Type: 
  Country: None (occurrence: None)
  Receive Date: 20050429
  Receipt Date: 20050128
  Transmission Date: 20051028
  Serious: Yes (Other)
  Sender: FDA-Public Use
  Company Number: PHEH2005US01428

PATIENT
  Age: 55 Year
  Sex: Female
  Weight: 83 kg

DRUGS (9)
  1. ZELNORM [Suspect]
     Indication: IRRITABLE BOWEL SYNDROME
     Dosage: 6 MG, UNK
     Route: 048
     Dates: start: 20050106
  2. CELEBREX [Concomitant]
     Indication: PAIN
     Dates: end: 20050127
  3. CELEBREX [Concomitant]
     Dosage: 200 MG, BID
  4. HYDROCHLOROTHIAZIDE [Concomitant]
  5. DEXTROPROPOXYPHENE NAPSILATE [Concomitant]
     Indication: PAIN
     Dosage: UNK, PRN
  6. STEROIDS NOS [Concomitant]
  7. CYMBALTA [Concomitant]
     Indication: DEPRESSION
     Dosage: UNK MG, QD
     Route: 048
  8. ALTACE [Concomitant]
     Indication: HYPERTENSION
     Dosage: 0.5 MG, QD
     Route: 048
  9. SYNTHROID [Concomitant]
     Indication: HYPOTHYROIDISM
     Route: 048

REACTIONS (4)
  - FLUID RETENTION [None]
  - OEDEMA PERIPHERAL [None]
  - SWELLING [None]
  - WEIGHT INCREASED [None]
